FAERS Safety Report 20792015 (Version 1)
Quarter: 2022Q2

REPORT INFORMATION
  Report Type: Spontaneous
  Country: US (occurrence: US)
  Receive Date: 20220505
  Receipt Date: 20220505
  Transmission Date: 20220721
  Serious: No
  Sender: FDA-Public Use
  Company Number: US-PFIZER INC-202200348195

PATIENT
  Age: 42 Year
  Sex: Male

DRUGS (2)
  1. CHANTIX [Suspect]
     Active Substance: VARENICLINE TARTRATE
     Indication: Smoking cessation therapy
     Dosage: SAME DOSE FOR FIRST COUPLE OF DAYS
     Route: 048
     Dates: start: 202202
  2. CHANTIX [Suspect]
     Active Substance: VARENICLINE TARTRATE
     Dosage: 1 MG, 2X/DAY (1MG TABLET TWICE A DAY BY MOUTH)
     Route: 048
     Dates: start: 202202

REACTIONS (2)
  - Recalled product administered [Unknown]
  - Weight decreased [Unknown]
